FAERS Safety Report 20542518 (Version 2)
Quarter: 2022Q1

REPORT INFORMATION
  Report Type: Report from Study
  Country: CA (occurrence: CA)
  Receive Date: 20220302
  Receipt Date: 20220311
  Transmission Date: 20220424
  Serious: No
  Sender: FDA-Public Use
  Company Number: CA-JNJFOC-20220148984

PATIENT
  Age: 38 Year
  Sex: Male
  Weight: 95.5 kg

DRUGS (2)
  1. REMICADE [Suspect]
     Active Substance: INFLIXIMAB
     Indication: Crohn^s disease
     Dosage: RECEIVED INFUSION ON  03-MAY-2021, 14-JUN-2021, 26-JUL-2021, AND 07-SEP-2021
     Route: 042
  2. COVID-19 VACCINE NOS [Suspect]
     Active Substance: COVID-19 VACCINE NOS
     Indication: Immunisation
     Dosage: FIRST DOSE WAS ON 19-MAY-2021 AND SECOND DOSE WAS ON 16- AUG- 2021
     Route: 065
     Dates: start: 20210519

REACTIONS (2)
  - Suspected COVID-19 [Not Recovered/Not Resolved]
  - Poor quality sleep [Unknown]

NARRATIVE: CASE EVENT DATE: 20220101
